FAERS Safety Report 16840223 (Version 2)
Quarter: 2019Q4

REPORT INFORMATION
  Report Type: Report from Study
  Country: FR (occurrence: FR)
  Receive Date: 20190923
  Receipt Date: 20191105
  Transmission Date: 20200122
  Serious: Yes (Hospitalization)
  Sender: FDA-Public Use
  Company Number: FR-PFIZER INC-2019398541

PATIENT
  Age: 58 Year
  Sex: Male
  Weight: 72 kg

DRUGS (19)
  1. CISPLATIN. [Suspect]
     Active Substance: CISPLATIN
     Dosage: 129 MG, 1X/DAY
     Dates: start: 20190509, end: 20190509
  2. GEMCITABINE HYDROCHLORIDE. [Suspect]
     Active Substance: GEMCITABINE HYDROCHLORIDE
     Dosage: 1850 MG, 1X/DAY
     Dates: start: 20190509, end: 20190509
  3. AVELUMAB [Suspect]
     Active Substance: AVELUMAB
     Dosage: 720 MG, 1X/DAY
     Dates: start: 20190509, end: 20190509
  4. GEMCITABINE HYDROCHLORIDE. [Suspect]
     Active Substance: GEMCITABINE HYDROCHLORIDE
     Dosage: 1850 MG, 1X/DAY
     Dates: start: 20190328, end: 20190328
  5. AVELUMAB [Suspect]
     Active Substance: AVELUMAB
     Dosage: 740 MG, 1X/DAY
     Dates: start: 20190328, end: 20190328
  6. AVELUMAB [Suspect]
     Active Substance: AVELUMAB
     Dosage: 740 MG, 1X/DAY
     Dates: start: 20190529
  7. GEMCITABINE HYDROCHLORIDE. [Suspect]
     Active Substance: GEMCITABINE HYDROCHLORIDE
     Indication: BLADDER TRANSITIONAL CELL CARCINOMA
     Dosage: 1900 MG, 1X/DAY
     Dates: start: 20190308, end: 20190308
  8. GEMCITABINE HYDROCHLORIDE. [Suspect]
     Active Substance: GEMCITABINE HYDROCHLORIDE
     Dosage: 1850 MG, 1X/DAY
     Dates: start: 20190426, end: 20190426
  9. AVELUMAB [Suspect]
     Active Substance: AVELUMAB
     Dosage: 720 MG, 1X/DAY
     Dates: start: 20190418, end: 20190418
  10. CISPLATIN. [Suspect]
     Active Substance: CISPLATIN
     Indication: BLADDER TRANSITIONAL CELL CARCINOMA
     Dosage: 130 MG, 1X/DAY
     Dates: start: 20190308, end: 20190308
  11. GEMCITABINE HYDROCHLORIDE. [Suspect]
     Active Substance: GEMCITABINE HYDROCHLORIDE
     Dosage: 1850 MG, 1X/DAY
     Dates: start: 20190315, end: 20190315
  12. GEMCITABINE HYDROCHLORIDE. [Suspect]
     Active Substance: GEMCITABINE HYDROCHLORIDE
     Dosage: 1850 MG, 1X/DAY
     Dates: start: 20190418, end: 20190418
  13. GEMCITABINE HYDROCHLORIDE. [Suspect]
     Active Substance: GEMCITABINE HYDROCHLORIDE
     Dosage: 1850 MG, 1X/DAY
     Dates: start: 20190517, end: 20190517
  14. CISPLATIN. [Suspect]
     Active Substance: CISPLATIN
     Dosage: 129 MG, 1X/DAY
     Dates: start: 20190418, end: 20190418
  15. GEMCITABINE HYDROCHLORIDE. [Suspect]
     Active Substance: GEMCITABINE HYDROCHLORIDE
     Dosage: 1850 MG, 1X/DAY
     Dates: start: 20190529
  16. GEMCITABINE HYDROCHLORIDE. [Suspect]
     Active Substance: GEMCITABINE HYDROCHLORIDE
     Dosage: 1850 MG, 1X/DAY
     Dates: start: 20190405, end: 20190405
  17. AVELUMAB [Suspect]
     Active Substance: AVELUMAB
     Indication: BLADDER TRANSITIONAL CELL CARCINOMA
     Dosage: 740 MG, 1X/DAY
     Dates: start: 20190308, end: 20190308
  18. CISPLATIN. [Suspect]
     Active Substance: CISPLATIN
     Dosage: 131 MG, 1X/DAY
     Dates: start: 20190328, end: 20190328
  19. CISPLATIN. [Suspect]
     Active Substance: CISPLATIN
     Dosage: 130 MG, 1X/DAY
     Dates: start: 20190529

REACTIONS (1)
  - Gastritis [Recovered/Resolved]

NARRATIVE: CASE EVENT DATE: 20190601
